FAERS Safety Report 8165313-9 (Version None)
Quarter: 2012Q1

REPORT INFORMATION
  Report Type: 
  Country: None (occurrence: None)
  Receive Date: 20120223
  Receipt Date: 20120223
  Transmission Date: 20120608
  Serious: Yes (Life-Threatening, Hospitalization)
  Sender: FDA-Public Use
  Company Number: None

PATIENT
  Sex: Female
  Weight: 100 kg

DRUGS (2)
  1. CEFOTETAN [Suspect]
     Indication: PREOPERATIVE CARE
     Dosage: INTRAVENOUS
     Route: 042
     Dates: start: 20120118
  2. CEFOTETAN [Suspect]
     Indication: PROPHYLAXIS
     Dosage: INTRAVENOUS
     Route: 042
     Dates: start: 20120118

REACTIONS (5)
  - ASTHENIA [None]
  - HYPERHIDROSIS [None]
  - DYSPNOEA [None]
  - SPLENOMEGALY [None]
  - HAEMOLYTIC ANAEMIA [None]
